FAERS Safety Report 12935847 (Version 1)
Quarter: 2016Q4

REPORT INFORMATION
  Report Type: Spontaneous
  Country: US (occurrence: US)
  Receive Date: 20161114
  Receipt Date: 20161114
  Transmission Date: 20170207
  Serious: No
  Sender: FDA-Public Use
  Company Number: US-INVENTIA-000142

PATIENT
  Sex: Female

DRUGS (2)
  1. TELMISARTAN INVENTIA [Suspect]
     Active Substance: TELMISARTAN
     Indication: BLOOD PRESSURE MANAGEMENT
  2. TAZTIA XT [Concomitant]
     Active Substance: DILTIAZEM HYDROCHLORIDE
     Indication: BLOOD PRESSURE MANAGEMENT

REACTIONS (4)
  - Urine odour abnormal [Unknown]
  - Dysuria [Unknown]
  - Rash [Unknown]
  - Rash pruritic [None]
